FAERS Safety Report 4569358-7 (Version None)
Quarter: 2005Q1

REPORT INFORMATION
  Report Type: 
  Country: None (occurrence: None)
  Receive Date: 20050203
  Receipt Date: 20050128
  Transmission Date: 20050727
  Serious: Yes (Hospitalization, Disabling)
  Sender: FDA-Public Use
  Company Number: DE-MERCK-0501DEU00284

PATIENT
  Sex: Male

DRUGS (2)
  1. VIOXX [Suspect]
     Indication: MUSCULOSKELETAL PAIN
     Route: 048
     Dates: start: 19990701, end: 20031201
  2. VIOXX [Suspect]
     Indication: PAIN
     Route: 048
     Dates: start: 19990701, end: 20031201

REACTIONS (3)
  - HYPERTENSION [None]
  - RENAL INFARCT [None]
  - RETINAL INFARCTION [None]
